FAERS Safety Report 6874988-3 (Version None)
Quarter: 2010Q3

REPORT INFORMATION
  Report Type: 
  Country: None (occurrence: None)
  Receive Date: 20100723
  Receipt Date: 20100715
  Transmission Date: 20110219
  Serious: Yes (Other)
  Sender: FDA-Public Use
  Company Number: 2010SP039307

PATIENT
  Age: 39 Year
  Sex: Female
  Weight: 55 kg

DRUGS (3)
  1. PEG-INTRON [Suspect]
     Indication: HEPATITIS C
     Dosage: 100 MCG; QW; SC, 0.4 ML; QW; SC
     Route: 058
     Dates: start: 20100115
  2. PEG-INTRON [Suspect]
  3. REBETOL [Suspect]
     Indication: HEPATITIS C
     Dosage: 200 MG;
     Dates: start: 20100115

REACTIONS (21)
  - BACTERIAL TEST POSITIVE [None]
  - BLOOD CALCIUM DECREASED [None]
  - BLOOD CHLORIDE INCREASED [None]
  - BLOOD GLUCOSE DECREASED [None]
  - BLOOD POTASSIUM INCREASED [None]
  - BLOOD SODIUM INCREASED [None]
  - BLOOD THYROID STIMULATING HORMONE DECREASED [None]
  - BLOOD UREA DECREASED [None]
  - BLOOD UREA INCREASED [None]
  - DISTURBANCE IN ATTENTION [None]
  - NEPHROGENIC DIABETES INSIPIDUS [None]
  - PROTEIN TOTAL INCREASED [None]
  - PROTEINURIA [None]
  - PRURITUS [None]
  - RASH [None]
  - RENAL TUBULAR DISORDER [None]
  - URINARY SEDIMENT PRESENT [None]
  - URINE VITAMIN K INCREASED [None]
  - WEIGHT DECREASED [None]
  - WHITE BLOOD CELL COUNT DECREASED [None]
  - XEROSIS [None]
